FAERS Safety Report 23686958 (Version 1)
Quarter: 2024Q1

REPORT INFORMATION
  Report Type: Spontaneous
  Country: US (occurrence: None)
  Receive Date: 20240326
  Receipt Date: 20240326
  Transmission Date: 20240410
  Serious: Yes (Life-Threatening, Hospitalization, Disabling)
  Sender: FDA-Public Use
  Company Number: None

PATIENT
  Age: 39 Year
  Sex: Male
  Weight: 81 kg

DRUGS (7)
  1. RISPERIDONE [Suspect]
     Active Substance: RISPERIDONE
     Dosage: 1 CAPSULE ORAL?
     Route: 048
  2. ALBUTEROL SULFATE [Concomitant]
  3. HGH somatropin [Concomitant]
  4. Asthmanepherin [Concomitant]
  5. ZYPREXA [Suspect]
     Active Substance: OLANZAPINE
  6. FLUOXETINE [Suspect]
     Active Substance: FLUOXETINE HYDROCHLORIDE
  7. LITHIUM [Suspect]
     Active Substance: LITHIUM

REACTIONS (6)
  - Product prescribing error [None]
  - Malaise [None]
  - Wrong product administered [None]
  - Bradycardia [None]
  - White blood cell count increased [None]
  - Product dose omission issue [None]

NARRATIVE: CASE EVENT DATE: 20190421
